FAERS Safety Report 16704037 (Version 2)
Quarter: 2019Q3

REPORT INFORMATION
  Report Type: Spontaneous
  Country: FR (occurrence: FR)
  Receive Date: 20190814
  Receipt Date: 20190916
  Transmission Date: 20191004
  Serious: Yes (Hospitalization)
  Sender: FDA-Public Use
  Company Number: FR-MYLANLABS-2019M1075194

PATIENT
  Sex: Male
  Weight: 61 kg

DRUGS (9)
  1. TAHOR [Concomitant]
     Active Substance: ATORVASTATIN CALCIUM
     Indication: DYSLIPIDAEMIA
     Dosage: 10 MILLIGRAM, QD (DRUG INTERVAL 1 DAY)
     Route: 048
  2. KARDEGIC [Concomitant]
     Active Substance: ASPIRIN DL-LYSINE
     Indication: PERIPHERAL ARTERIAL OCCLUSIVE DISEASE
     Dosage: 160 MILLIGRAM, QD (DRUG INTERVAL 1 DAY)
     Route: 048
  3. IFOSFAMIDE. [Suspect]
     Active Substance: IFOSFAMIDE
     Indication: GENITAL CANCER MALE
     Dosage: 1200 MILLIGRAM/SQ. METER, MONTHLY (DRUG INTERVAL 4 WEEK)
     Route: 041
     Dates: start: 20160409, end: 20160630
  4. LASILIX                            /00032601/ [Concomitant]
     Active Substance: FUROSEMIDE
     Indication: OEDEMA PERIPHERAL
     Dosage: 20 MILLIGRAM, QD (20 MILLIGRAM, DRUG INTERVAL 1 DAY)
     Route: 048
     Dates: start: 20180730
  5. RITUXIMAB. [Concomitant]
     Active Substance: RITUXIMAB
     Indication: PRODUCT USED FOR UNKNOWN INDICATION
     Dosage: 1G PAR CURE
     Route: 041
     Dates: start: 20180728, end: 20180813
  6. CISPLATIN. [Suspect]
     Active Substance: CISPLATIN
     Indication: GENITAL CANCER MALE
     Dosage: 25 MILLIGRAM/SQ. METER, MONTHLY (DRUG INETRVAL 4 WEEKS)
     Route: 041
     Dates: start: 20160409, end: 20160630
  7. PACLITAXEL. [Suspect]
     Active Substance: PACLITAXEL
     Indication: GENITAL CANCER MALE
     Dosage: 175 MILLIGRAM/SQ. METER, MONTHLY ( DRUG INTERVAL 4 WEEKS)
     Route: 041
     Dates: start: 20160409, end: 20160630
  8. IMUREL                             /00001501/ [Concomitant]
     Active Substance: AZATHIOPRINE SODIUM
     Indication: INTERSTITIAL LUNG DISEASE
     Dosage: 100 MILLIGRAM, QD (DRUG INTERVAL 1 DAY)
     Route: 048
     Dates: start: 20170710, end: 20180205
  9. SOLUPRED                           /00016201/ [Concomitant]
     Active Substance: PREDNISOLONE
     Indication: INTERSTITIAL LUNG DISEASE
     Dosage: 30 MILLIGRAM, QD (DRUG INETRAVL 1 DAY)
     Route: 048
     Dates: start: 20170119

REACTIONS (3)
  - Raynaud^s phenomenon [Not Recovered/Not Resolved]
  - Product use in unapproved indication [Unknown]
  - Interstitial lung disease [Not Recovered/Not Resolved]

NARRATIVE: CASE EVENT DATE: 20160601
